FAERS Safety Report 12180037 (Version 3)
Quarter: 2017Q3

REPORT INFORMATION
  Report Type: Spontaneous
  Country: US (occurrence: US)
  Receive Date: 20160315
  Receipt Date: 20170815
  Transmission Date: 20171127
  Serious: No
  Sender: FDA-Public Use
  Company Number: US-PFIZER INC-2016098755

PATIENT
  Age: 60 Year
  Sex: Female
  Weight: 94 kg

DRUGS (2)
  1. SUMATRIPTAN SUCCINATE. [Suspect]
     Active Substance: SUMATRIPTAN SUCCINATE
     Dosage: UNK
  2. MEDROL [Suspect]
     Active Substance: METHYLPREDNISOLONE
     Dosage: UNK

REACTIONS (1)
  - Drug hypersensitivity [Unknown]
